FAERS Safety Report 8505785-0 (Version None)
Quarter: 2012Q3

REPORT INFORMATION
  Report Type: 
  Country: None (occurrence: None)
  Receive Date: 20120712
  Receipt Date: 20120703
  Transmission Date: 20120928
  Serious: Yes (Hospitalization, Disabling, Other)
  Sender: FDA-Public Use
  Company Number: US-009507513-1107USA03282

PATIENT

DRUGS (10)
  1. CALCIUM (UNSPECIFIED) (+) VITAMIN D (UNSPECIFIED) [Concomitant]
     Dosage: 500-600
     Dates: start: 20000101
  2. ASCORBIC ACID [Concomitant]
     Dosage: 1000 MG, UNK
     Dates: start: 20000101
  3. FOSAMAX [Suspect]
     Indication: OSTEOPENIA
  4. FOSAMAX [Suspect]
     Dosage: 70 MG, QW
     Route: 048
     Dates: start: 20080305, end: 20100301
  5. VITAMIN B (UNSPECIFIED) [Concomitant]
     Dosage: 200 MG, UNK
     Dates: start: 20000101
  6. FOSAMAX [Suspect]
  7. OMEGA-3 MARINE TRIGLYCERIDES [Concomitant]
     Dosage: UNK UNK, QD
     Dates: start: 20000101
  8. FOSAMAX [Suspect]
     Indication: OSTEOPOROSIS
     Dosage: 70 MG, QW
     Route: 048
     Dates: start: 19990101, end: 20080301
  9. FOSAMAX PLUS D [Suspect]
     Indication: OSTEOPENIA
     Dosage: 70 MG, UNK
     Route: 048
     Dates: start: 20061201
  10. MK-9278 [Concomitant]
     Dosage: UNK UNK, QD
     Dates: start: 20000101

REACTIONS (51)
  - DIVERTICULUM [None]
  - BLOOD GLUCOSE INCREASED [None]
  - JOINT STIFFNESS [None]
  - LOW TURNOVER OSTEOPATHY [None]
  - VITAMIN D DEFICIENCY [None]
  - CHOLELITHIASIS [None]
  - CYSTITIS INTERSTITIAL [None]
  - OPEN WOUND [None]
  - URINARY TRACT INFECTION [None]
  - DYSURIA [None]
  - DEPRESSION [None]
  - HERPES ZOSTER [None]
  - VERTIGO [None]
  - CELLULITIS [None]
  - TOOTH INFECTION [None]
  - FALL [None]
  - METABOLIC DISORDER [None]
  - FEMUR FRACTURE [None]
  - OBESITY [None]
  - APPENDIX DISORDER [None]
  - DEVICE FAILURE [None]
  - CALCIUM DEFICIENCY [None]
  - POLLAKIURIA [None]
  - DYSLIPIDAEMIA [None]
  - HYPERLIPIDAEMIA [None]
  - OSTEOGENESIS IMPERFECTA [None]
  - PAIN IN EXTREMITY [None]
  - ATAXIA [None]
  - FRACTURE DELAYED UNION [None]
  - VERTEBRAL FORAMINAL STENOSIS [None]
  - MICTURITION URGENCY [None]
  - SPINAL COLUMN STENOSIS [None]
  - OSTEITIS DEFORMANS [None]
  - VARICOSE VEIN [None]
  - OSTEOMA [None]
  - CANDIDIASIS [None]
  - GALLBLADDER DISORDER [None]
  - HYPOTHERMIA [None]
  - INCREASED TENDENCY TO BRUISE [None]
  - ANAEMIA [None]
  - OSTEOARTHRITIS [None]
  - HAEMORRHOIDS [None]
  - HAEMATOMA [None]
  - INTERMITTENT CLAUDICATION [None]
  - WRIST FRACTURE [None]
  - ADVERSE DRUG REACTION [None]
  - HYPOKALAEMIA [None]
  - FRACTURE NONUNION [None]
  - TOOTH DISORDER [None]
  - PELVIC PAIN [None]
  - MUSCLE SPASMS [None]
